FAERS Safety Report 12852999 (Version 4)
Quarter: 2016Q4

REPORT INFORMATION
  Report Type: Spontaneous
  Country: FR (occurrence: FR)
  Receive Date: 20161017
  Receipt Date: 20161216
  Transmission Date: 20170207
  Serious: Yes (Hospitalization, Other)
  Sender: FDA-Public Use
  Company Number: FR-PFIZER INC-2016479795

PATIENT
  Age: 81 Year
  Sex: Female

DRUGS (12)
  1. SOTALOL. [Concomitant]
     Active Substance: SOTALOL
     Dosage: 80 MG, 2X/DAY (MORNING AND EVENING)
  2. SERESTA [Concomitant]
     Active Substance: OXAZEPAM
     Dosage: 25 MG, 1X/DAY (AT BEDTIME)
  3. IMETH [Suspect]
     Active Substance: METHOTREXATE SODIUM
     Indication: RHEUMATOID ARTHRITIS
     Dosage: 15 MG, ONCE WEEKLY (ON MONDAYS)
     Route: 048
     Dates: start: 201511, end: 20160912
  4. VENTOLINE [Concomitant]
     Active Substance: ALBUTEROL
     Dosage: 1 DF (1 VIAL), UNK
     Route: 055
  5. DICLOFENAC [Concomitant]
     Active Substance: DICLOFENAC
     Dosage: UNK
  6. EUPANTOL [Concomitant]
     Active Substance: PANTOPRAZOLE SODIUM
     Dosage: 40 MG, 1X/DAY (ON EVENING)
  7. ZOLPIDEM [Concomitant]
     Active Substance: ZOLPIDEM\ZOLPIDEM TARTRATE
     Dosage: 0.5 DF, 1X/DAY (AT BEDTIME)
  8. PREVISCAN [Concomitant]
     Active Substance: FLUINDIONE
     Dosage: 0.5 DF ON EVENING, ALTERNATELY WITH 0.25 DF
  9. AZYTER [Concomitant]
     Active Substance: AZITHROMYCIN ANHYDROUS
     Dosage: 1 GTT, 2X/DAY (MORNING AND EVENING)
  10. CETIRIZINE [Concomitant]
     Active Substance: CETIRIZINE HYDROCHLORIDE
     Dosage: 1 DF, 1X/DAY (AT NOON)
  11. FOLIC ACID. [Concomitant]
     Active Substance: FOLIC ACID
     Dosage: 1 DF, 2X/WEEK (MORNING AND EVENING ON TUESDAYS)
  12. UVEDOSE [Concomitant]
     Active Substance: CHOLECALCIFEROL
     Dosage: 100000 IU, UNK

REACTIONS (17)
  - Hepatocellular injury [Unknown]
  - Medication error [Unknown]
  - Lymphangitis [Unknown]
  - Joint abscess [Recovering/Resolving]
  - Mouth ulceration [Recovered/Resolved]
  - Leukopenia [Recovered/Resolved]
  - Oesophageal pain [Unknown]
  - Thrombocytopenia [Recovered/Resolved]
  - Pseudomonas infection [Recovering/Resolving]
  - Enterobacter test positive [Recovering/Resolving]
  - Epstein-Barr virus test positive [Recovered/Resolved]
  - Toxicity to various agents [Unknown]
  - Cheilitis [Unknown]
  - Lip haemorrhage [Unknown]
  - Abscess bacterial [Recovering/Resolving]
  - Rash generalised [Unknown]
  - Diarrhoea [Unknown]

NARRATIVE: CASE EVENT DATE: 201609
